FAERS Safety Report 5850850-X (Version None)
Quarter: 2008Q3

REPORT INFORMATION
  Report Type: 
  Country: None (occurrence: None)
  Receive Date: 20080820
  Receipt Date: 20080812
  Transmission Date: 20090109
  Serious: Yes (Other)
  Sender: FDA-Public Use
  Company Number: DE-TEVA-175916ISR

PATIENT
  Sex: Female

DRUGS (2)
  1. CARVEDILOL [Suspect]
     Indication: HYPERTENSION
     Dosage: 1.5 DF DOSAGE FORM, 1 DAY
     Route: 048
     Dates: start: 20080520
  2. LANSOPRAZOLE [Concomitant]
     Indication: BARRETT'S OESOPHAGUS

REACTIONS (1)
  - GASTRIC ULCER [None]
